FAERS Safety Report 21940092 (Version 2)
Quarter: 2023Q1

REPORT INFORMATION
  Report Type: Spontaneous
  Country: US (occurrence: US)
  Receive Date: 20230201
  Receipt Date: 20230220
  Transmission Date: 20230417
  Serious: No
  Sender: FDA-Public Use
  Company Number: US-JNJFOC-20230149825

PATIENT
  Age: 90 Year
  Sex: Female

DRUGS (6)
  1. TYLENOL 8 HR ARTHRITIS PAIN [Suspect]
     Active Substance: ACETAMINOPHEN
     Indication: Arthralgia
     Route: 065
     Dates: start: 20230120, end: 20230121
  2. ELIQUIS [Concomitant]
     Active Substance: APIXABAN
     Indication: Atrial fibrillation
     Dosage: PRODUCT START DATE YEAR AGO
     Route: 065
     Dates: start: 2022
  3. LOSARTAN [Concomitant]
     Active Substance: LOSARTAN
     Indication: Hypertension
     Dosage: PRODUCT START DATE YEAR AGO
     Route: 065
     Dates: start: 2022
  4. VD3 [Concomitant]
     Indication: Osteonecrosis
     Dosage: 1000UNIT , PRODUCT START DATE YEAR AGO
     Route: 065
     Dates: start: 2022
  5. DILTIAZEM [Concomitant]
     Active Substance: DILTIAZEM
     Indication: Hypertension
     Dosage: PRODUCT START DATE YEAR AGO
     Route: 065
     Dates: start: 2022
  6. PRAVASTATIN [Concomitant]
     Active Substance: PRAVASTATIN
     Indication: Blood cholesterol
     Dosage: PRODUCT START DATE YEAR AGO
     Route: 065
     Dates: start: 2022

REACTIONS (3)
  - Heart rate increased [Recovered/Resolved]
  - Incorrect dose administered [Unknown]
  - Inappropriate schedule of product administration [Unknown]

NARRATIVE: CASE EVENT DATE: 20230120
